FAERS Safety Report 4399785-2 (Version None)
Quarter: 2004Q3

REPORT INFORMATION
  Report Type: 
  Country: None (occurrence: None)
  Receive Date: 20040716
  Receipt Date: 20040610
  Transmission Date: 20050211
  Serious: Yes (Hospitalization)
  Sender: FDA-Public Use
  Company Number: GB-BRISTOL-MYERS SQUIBB COMPANY-12617650

PATIENT
  Age: 67 Year
  Sex: Female
  Weight: 39 kg

DRUGS (7)
  1. MITOXANA [Suspect]
     Indication: SPINDLE CELL SARCOMA
     Route: 042
     Dates: start: 20040427, end: 20040427
  2. MESNA [Suspect]
     Indication: SPINDLE CELL SARCOMA
     Route: 042
     Dates: start: 20040427, end: 20040427
  3. DOXORUBICIN [Suspect]
     Indication: SPINDLE CELL SARCOMA
     Route: 042
     Dates: start: 20040427, end: 20040427
  4. SERTRALINE HCL [Concomitant]
  5. LANSOPRAZOLE [Concomitant]
  6. DICLOFENAC [Concomitant]
  7. PHENYTOIN [Concomitant]

REACTIONS (2)
  - NEUTROPENIC SEPSIS [None]
  - PYREXIA [None]
